FAERS Safety Report 12771313 (Version 1)
Quarter: 2016Q3

REPORT INFORMATION
  Report Type: Spontaneous
  Country: US (occurrence: US)
  Receive Date: 20160922
  Receipt Date: 20160922
  Transmission Date: 20161109
  Serious: No
  Sender: FDA-Public Use
  Company Number: US-TARO-2015TAR01177

PATIENT
  Age: 3 Year
  Sex: Male
  Weight: 15.87 kg

DRUGS (4)
  1. LORATADINE SYRUP (LORATADINE ORAL SOLUTION USP) 5MG/5ML [Suspect]
     Active Substance: LORATADINE
     Dosage: 1 TSP, 1X/DAY
     Route: 048
     Dates: start: 201512
  2. UNSPECIFIED VITAMIN [Concomitant]
     Dosage: UNK, 1X/DAY
  3. LORATADINE SYRUP (LORATADINE ORAL SOLUTION USP) 5MG/5ML [Suspect]
     Active Substance: LORATADINE
     Indication: MULTIPLE ALLERGIES
     Dosage: 5 MG, ONCE
     Route: 048
     Dates: start: 20151223, end: 20151223
  4. LORATADINE SYRUP (LORATADINE ORAL SOLUTION USP) 5MG/5ML [Suspect]
     Active Substance: LORATADINE
     Dosage: 5 MG, ONCE
     Route: 048
     Dates: start: 20151224, end: 20151224

REACTIONS (2)
  - Accidental overdose [Recovered/Resolved]
  - Somnolence [Recovered/Resolved]

NARRATIVE: CASE EVENT DATE: 20151224
